FAERS Safety Report 7650124-0 (Version None)
Quarter: 2011Q3

REPORT INFORMATION
  Report Type: 
  Country: None (occurrence: None)
  Receive Date: 20110802
  Receipt Date: 20110721
  Transmission Date: 20111222
  Serious: Yes (Death, Other)
  Sender: FDA-Public Use
  Company Number: JP-ROCHE-744482

PATIENT
  Sex: Male
  Weight: 49 kg

DRUGS (3)
  1. PACLITAXEL [Concomitant]
     Dosage: DOSAGE IS UNCERTAIN.
     Route: 041
     Dates: start: 20100608, end: 20100608
  2. CARBOPLATIN [Concomitant]
     Indication: LUNG ADENOCARCINOMA
     Dosage: DOSAGE IS UNCERTAIN
     Route: 041
     Dates: start: 20100608, end: 20100608
  3. AVASTIN [Suspect]
     Indication: LUNG ADENOCARCINOMA
     Route: 041
     Dates: start: 20100608, end: 20100608

REACTIONS (2)
  - NEPHROTIC SYNDROME [None]
  - DISEASE PROGRESSION [None]
